FAERS Safety Report 12411242 (Version 1)
Quarter: 2016Q2

REPORT INFORMATION
  Report Type: Spontaneous
  Country: US (occurrence: None)
  Receive Date: 20160526
  Receipt Date: 20160526
  Transmission Date: 20160815
  Serious: Yes (Other)
  Sender: FDA-Public Use
  Company Number: None

PATIENT
  Age: 66 Year
  Sex: Female
  Weight: 58.97 kg

DRUGS (5)
  1. VITAMIN B COMPLEX [Concomitant]
     Active Substance: CYANOCOBALAMIN\DEXPANTHENOL\NIACINAMIDE\PYRIDOXINE HYDROCHLORIDE\RIBOFLAVIN 5^-PHOSPHATE SODIUM\THIAMINE HYDROCHLORIDE\VITAMIN B COMPLEX
  2. VITAMIN D [Concomitant]
     Active Substance: CHOLECALCIFEROL
  3. IBUPROFEN. [Concomitant]
     Active Substance: IBUPROFEN
  4. CLINDAMYCIN [Suspect]
     Active Substance: CLINDAMYCIN\CLINDAMYCIN PHOSPHATE
     Indication: POSTOPERATIVE WOUND INFECTION
     Dosage: 150 MG, 1 CAPSULE EVERY 6 HRS FOR 2 DAYS, THEN 1 EVERY 8 HOURS ^TILL GONE, MOUTH
     Route: 048
     Dates: start: 20160407, end: 20160420
  5. MAGNESIUM [Concomitant]
     Active Substance: MAGNESIUM

REACTIONS (13)
  - Cold sweat [None]
  - Pruritus [None]
  - Inflammation [None]
  - Bone pain [None]
  - Diarrhoea [None]
  - Erythema [None]
  - Skin disorder [None]
  - Myalgia [None]
  - Pain in extremity [None]
  - Dizziness [None]
  - Ear swelling [None]
  - Presyncope [None]
  - Urticaria [None]

NARRATIVE: CASE EVENT DATE: 20160427
